FAERS Safety Report 11233292 (Version 9)
Quarter: 2015Q4

REPORT INFORMATION
  Report Type: Report from Study
  Country: CA (occurrence: CA)
  Receive Date: 20150701
  Receipt Date: 20151202
  Transmission Date: 20160304
  Serious: Yes (Other)
  Sender: FDA-Public Use
  Company Number: CA-ROCHE-1374052

PATIENT
  Age: 59 Year
  Sex: Female
  Weight: 88 kg

DRUGS (15)
  1. METHOTREXATE [Suspect]
     Active Substance: METHOTREXATE
     Indication: PRODUCT USED FOR UNKNOWN INDICATION
     Route: 065
  2. PGX [Concomitant]
  3. LEVOTHYROXIN [Concomitant]
     Active Substance: LEVOTHYROXINE
  4. RITUXAN [Suspect]
     Active Substance: RITUXIMAB
     Indication: RHEUMATOID ARTHRITIS
     Dosage: LAST DOSE OF RITUXAN ON 01/APR/2014
     Route: 042
     Dates: start: 20140317, end: 20141022
  5. PREDNISONE. [Concomitant]
     Active Substance: PREDNISONE
  6. SOLU-MEDROL [Concomitant]
     Active Substance: METHYLPREDNISOLONE SODIUM SUCCINATE
     Route: 042
     Dates: start: 20140317
  7. VALSARTAN COMP [Concomitant]
     Indication: HYPERTENSION
  8. LEVOTHYROXINE. [Concomitant]
     Active Substance: LEVOTHYROXINE
  9. NORTRIPTYLINE [Concomitant]
     Active Substance: NORTRIPTYLINE
  10. FOLIC ACID. [Concomitant]
     Active Substance: FOLIC ACID
  11. FLAXSEED [Concomitant]
     Active Substance: FLAX SEED
  12. VITAMIN C [Concomitant]
     Active Substance: ASCORBIC ACID
  13. ACTEMRA [Suspect]
     Active Substance: TOCILIZUMAB
     Indication: RHEUMATOID ARTHRITIS
     Route: 042
     Dates: start: 20150226
  14. SYNTHROID [Concomitant]
     Active Substance: LEVOTHYROXINE SODIUM
  15. AMLODIPINE [Concomitant]
     Active Substance: AMLODIPINE BESYLATE
     Route: 065

REACTIONS (17)
  - Blood pressure diastolic decreased [Unknown]
  - Weight increased [Unknown]
  - Blood pressure increased [Unknown]
  - Hypertension [Not Recovered/Not Resolved]
  - Infection [Unknown]
  - Drug effect decreased [Unknown]
  - Oral herpes [Not Recovered/Not Resolved]
  - Poor venous access [Not Recovered/Not Resolved]
  - Anaemia [Unknown]
  - Oropharyngeal pain [Recovered/Resolved]
  - Drug ineffective [Unknown]
  - Gastrointestinal disorder [Unknown]
  - Skin warm [Unknown]
  - Cough [Unknown]
  - Helicobacter infection [Unknown]
  - Infusion related reaction [Recovered/Resolved]
  - Dental caries [Unknown]

NARRATIVE: CASE EVENT DATE: 20140317
